FAERS Safety Report 8362912-6 (Version None)
Quarter: 2012Q2

REPORT INFORMATION
  Report Type: 
  Country: None (occurrence: None)
  Receive Date: 20120514
  Receipt Date: 20120501
  Transmission Date: 20120825
  Serious: Yes (Hospitalization, Disabling, Other)
  Sender: FDA-Public Use
  Company Number: 2011MA003127

PATIENT
  Sex: Female
  Weight: 97.5234 kg

DRUGS (22)
  1. AMOXICILLIN [Concomitant]
  2. METOCLOPRAMIDE [Suspect]
     Indication: GASTROOESOPHAGEAL REFLUX DISEASE
     Dosage: 10 MG; 30 MIN AC + HS; PO
     Route: 048
     Dates: start: 20080605, end: 20090601
  3. ENALAPRIL MALEATE [Concomitant]
  4. FLECTOR [Concomitant]
  5. HYDROCODONE BITARTRATE AND ACETAMINOPHEN [Concomitant]
  6. INSULIN (HUMALOG, HUMULIN, NOVOLOG) [Concomitant]
  7. NITROFURANTOIN [Concomitant]
  8. CYCLOBENZAPRINE [Concomitant]
  9. FLUCONAZOLE [Concomitant]
  10. PANTOPRAZOLE [Concomitant]
  11. MUCINEX [Concomitant]
  12. POTASSIUM CHLORIDE [Concomitant]
  13. SULFAMETHOXAZOLE AND TRIMETHOPRIM [Concomitant]
  14. TRAMADOL HYDROCHLORIDE [Concomitant]
  15. FUROSEMIDE [Concomitant]
  16. PROPOXYPHENE NAPSYLATE [Concomitant]
  17. CLOTRIMAZOLE [Concomitant]
  18. METRONIDAZOLE [Concomitant]
  19. OMEPRAZOLE [Concomitant]
  20. HYDROCHLOROTHIAZIDE [Concomitant]
  21. NAPROXEN [Concomitant]
  22. FERROUS SULFATE TAB [Concomitant]

REACTIONS (13)
  - DYSKINESIA [None]
  - ECONOMIC PROBLEM [None]
  - HYPERTENSION [None]
  - GRIMACING [None]
  - EXCESSIVE EYE BLINKING [None]
  - DYSTONIA [None]
  - ANAEMIA [None]
  - MOVEMENT DISORDER [None]
  - TARDIVE DYSKINESIA [None]
  - TREMOR [None]
  - EXTRAPYRAMIDAL DISORDER [None]
  - EMOTIONAL DISORDER [None]
  - OEDEMA [None]
